FAERS Safety Report 5877126-9 (Version None)
Quarter: 2008Q3

REPORT INFORMATION
  Report Type: 
  Country: None (occurrence: None)
  Receive Date: 20080910
  Receipt Date: 20080902
  Transmission Date: 20090109
  Serious: Yes (Other)
  Sender: FDA-Public Use
  Company Number: US-PFIZER INC-2007075728

PATIENT
  Sex: Female
  Weight: 63.1 kg

DRUGS (2)
  1. LIPITOR [Suspect]
     Indication: CEREBROVASCULAR ACCIDENT
     Dates: start: 20070401, end: 20070907
  2. COZAAR [Concomitant]
     Indication: HYPERTENSION

REACTIONS (10)
  - AMNESIA [None]
  - APHASIA [None]
  - COGNITIVE DISORDER [None]
  - DEPRESSION [None]
  - DIZZINESS [None]
  - FEELING ABNORMAL [None]
  - HOMICIDAL IDEATION [None]
  - IMPAIRED WORK ABILITY [None]
  - LETHARGY [None]
  - SUICIDAL IDEATION [None]
